FAERS Safety Report 5416607-9 (Version None)
Quarter: 2007Q3

REPORT INFORMATION
  Report Type: 
  Country: None (occurrence: None)
  Receive Date: 20070816
  Receipt Date: 20070809
  Transmission Date: 20080115
  Serious: Yes (Life-Threatening)
  Sender: FDA-Public Use
  Company Number: FR-AVENTIS-200712221FR

PATIENT
  Age: 56 Year
  Sex: Male

DRUGS (8)
  1. PROFENID [Suspect]
     Route: 042
     Dates: start: 20070321, end: 20070325
  2. LOVENOX [Suspect]
     Indication: THROMBOSIS PROPHYLAXIS
     Route: 058
     Dates: start: 20070321, end: 20070324
  3. MYOLASTAN [Suspect]
     Indication: DRUG USE FOR UNKNOWN INDICATION
     Route: 048
     Dates: start: 20070323, end: 20070325
  4. PERFALGAN [Suspect]
     Indication: DRUG USE FOR UNKNOWN INDICATION
     Dosage: DOSE QUANTITY: 40; DAILY DOSE UNIT: MILLIGRAM PER MILLILITRE
     Route: 042
     Dates: start: 20070321, end: 20070325
  5. DEBRIDAT                           /00465201/ [Suspect]
     Indication: DRUG USE FOR UNKNOWN INDICATION
     Dosage: DOSE QUANTITY: 40; DAILY DOSE UNIT: MILLIGRAM PER MILLILITRE
     Route: 042
     Dates: start: 20070323, end: 20070325
  6. NIMBEX [Suspect]
     Route: 042
     Dates: start: 20070326, end: 20070326
  7. ULTIVA [Suspect]
     Route: 042
     Dates: start: 20070326, end: 20070326
  8. DIPRIVAN [Suspect]
     Route: 042
     Dates: start: 20070326, end: 20070326

REACTIONS (4)
  - DERMATITIS BULLOUS [None]
  - HYPOTENSION [None]
  - RASH ERYTHEMATOUS [None]
  - STEVENS-JOHNSON SYNDROME [None]
